FAERS Safety Report 14605796 (Version 3)
Quarter: 2018Q2

REPORT INFORMATION
  Report Type: Spontaneous
  Country: BR (occurrence: BR)
  Receive Date: 20180306
  Receipt Date: 20180521
  Transmission Date: 20180711
  Serious: Yes (Other)
  Sender: FDA-Public Use
  Company Number: BR-BEH-2018088547

PATIENT
  Sex: Female

DRUGS (1)
  1. RHOPHYLAC [Suspect]
     Active Substance: HUMAN RHO(D) IMMUNE GLOBULIN
     Indication: HAEMORRHAGE IN PREGNANCY
     Dosage: 2 ML, UNK
     Route: 065
     Dates: start: 20180207

REACTIONS (1)
  - Coombs indirect test positive [Recovered/Resolved]

NARRATIVE: CASE EVENT DATE: 201802
